FAERS Safety Report 5136726-4 (Version None)
Quarter: 2006Q4

REPORT INFORMATION
  Report Type: 
  Country: None (occurrence: None)
  Receive Date: 20061023
  Receipt Date: 20061017
  Transmission Date: 20070319
  Serious: Yes (Other)
  Sender: FDA-Public Use
  Company Number: 2006-BP-12124RO

PATIENT
  Age: 24 Year
  Sex: Male

DRUGS (2)
  1. CYCLOPHOSPHAMIDE [Suspect]
     Indication: CHEMOTHERAPY
  2. AML 10 PROTOCOL (CHEMOTHERAPEUTICS NOS) [Suspect]
     Indication: CHEMOTHERAPY

REACTIONS (2)
  - MUCOEPIDERMOID CARCINOMA [None]
  - SALIVARY GLAND CANCER [None]
